APPROVED DRUG PRODUCT: MINIRIN
Active Ingredient: DESMOPRESSIN ACETATE
Strength: 0.01MG/SPRAY
Dosage Form/Route: SPRAY, METERED;NASAL
Application: N021333 | Product #001
Applicant: FERRING PHARMACEUTICALS INC
Approved: Sep 16, 2002 | RLD: Yes | RS: No | Type: DISCN